FAERS Safety Report 4608646-2 (Version None)
Quarter: 2005Q1

REPORT INFORMATION
  Report Type: 
  Country: None (occurrence: None)
  Receive Date: 20050315
  Receipt Date: 20050119
  Transmission Date: 20050727
  Serious: Yes (Death, Life-Threatening, Hospitalization, Other)
  Sender: FDA-Public Use
  Company Number: GBWYE354819JAN05

PATIENT
  Sex: Female

DRUGS (7)
  1. ENBREL [Suspect]
     Indication: RHEUMATOID ARTHRITIS
     Dosage: UNKNOWN
     Dates: start: 20040801, end: 20050208
  2. SULFASALAZINE [Concomitant]
     Dosage: UNKNOWN
     Dates: end: 20041201
  3. METHOTREXATE [Concomitant]
  4. WARFARIN SODIUM [Concomitant]
  5. PREDNISOLONE [Concomitant]
  6. GOLD [Concomitant]
  7. HYDROXYCHLOROQUINE SULFATE [Concomitant]

REACTIONS (6)
  - CEREBROVASCULAR ACCIDENT [None]
  - DEATH [None]
  - EMBOLISM [None]
  - GRAND MAL CONVULSION [None]
  - HEMIPARESIS [None]
  - METASTATIC MALIGNANT MELANOMA [None]
